FAERS Safety Report 9399313 (Version 4)
Quarter: 2013Q4

REPORT INFORMATION
  Report Type: Spontaneous
  Country: US (occurrence: US)
  Receive Date: 20130715
  Receipt Date: 20131001
  Transmission Date: 20140711
  Serious: Yes (Death, Hospitalization, Other)
  Sender: FDA-Public Use
  Company Number: US-PFIZER INC-2013204176

PATIENT
  Age: 59 Year
  Sex: Male
  Weight: 74.38 kg

DRUGS (10)
  1. SUTENT [Suspect]
     Indication: RENAL CELL CARCINOMA
     Dosage: UNK MG, 1X/DAY
     Route: 048
     Dates: start: 201306, end: 2013
  2. SUTENT [Suspect]
     Dosage: UNK MG, 1X/DAY
     Route: 048
     Dates: start: 20130709, end: 2013
  3. SUTENT [Suspect]
     Dosage: UNK MG, 1X/DAY
     Dates: start: 2013, end: 20130916
  4. KEPPRA [Concomitant]
     Dosage: 500 MG, TWICE A DAY
     Route: 048
  5. NORVASC [Concomitant]
     Dosage: 10 MG, DAILY
     Route: 048
  6. PROTONIX [Concomitant]
     Dosage: 40 MG, DAILY
     Route: 048
  7. SENNA-S [Concomitant]
     Dosage: 8.6 MG/50 MG, TWICE A DAY
     Route: 048
  8. COREG [Concomitant]
     Dosage: 3.125 MG, TWICE A DAY
     Route: 048
  9. ZOFRAN [Concomitant]
     Indication: NAUSEA
     Dosage: 4 MG, AS NEEDED
     Route: 048
  10. MULTIPLE VITAMINS [Concomitant]
     Dosage: 1 DF, DAILY
     Route: 048

REACTIONS (14)
  - Malnutrition [Fatal]
  - Decreased appetite [Unknown]
  - Platelet count decreased [Unknown]
  - Blood pressure increased [Unknown]
  - Fatigue [Unknown]
  - Somnolence [Unknown]
  - Skin exfoliation [Unknown]
  - Yellow skin [Unknown]
  - Hypersomnia [Unknown]
  - Constipation [Unknown]
  - Abdominal pain [Unknown]
  - Dehydration [Unknown]
  - Weight decreased [Unknown]
  - Dysgeusia [Unknown]
